FAERS Safety Report 7559700-7 (Version None)
Quarter: 2011Q2

REPORT INFORMATION
  Report Type: 
  Country: None (occurrence: None)
  Receive Date: 20110621
  Receipt Date: 20110608
  Transmission Date: 20111010
  Serious: Yes (Life-Threatening, Hospitalization, Disabling)
  Sender: FDA-Public Use
  Company Number: US-ROCHE-774425

PATIENT
  Sex: Female
  Weight: 65 kg

DRUGS (13)
  1. ESTRODOSE [Concomitant]
  2. PREDNISONE [Concomitant]
  3. TRAMADOL HCL [Concomitant]
  4. METHOTREXATE [Concomitant]
     Dosage: 0.7CC SQ WEEKLY
  5. HCQS [Concomitant]
  6. REQUIP [Concomitant]
  7. LEVOTHYROXINE SODIUM [Concomitant]
  8. ACTEMRA [Suspect]
     Dosage: DOSE 280MG(LAST TREATMENT),FREQUENCY 94 WEEKS
     Route: 042
     Dates: start: 20101110, end: 20110322
  9. PROTONIX [Concomitant]
  10. MACRODANTIN [Concomitant]
  11. LORTAB [Concomitant]
  12. CA++ [Concomitant]
  13. CYCLOBENZAPRINE [Concomitant]

REACTIONS (2)
  - DIVERTICULITIS [None]
  - GASTROINTESTINAL PERFORATION [None]
